FAERS Safety Report 21746832 (Version 1)
Quarter: 2022Q4

REPORT INFORMATION
  Report Type: Report from Study
  Country: US (occurrence: US)
  Receive Date: 20221219
  Receipt Date: 20221219
  Transmission Date: 20230113
  Serious: No
  Sender: FDA-Public Use
  Company Number: US-ABBVIE-22K-163-4494491-00

PATIENT
  Sex: Female

DRUGS (3)
  1. HUMIRA [Suspect]
     Active Substance: ADALIMUMAB
     Indication: Colitis ulcerative
     Dosage: DOSE INCREASED
     Route: 058
     Dates: start: 20220103, end: 2022
  2. HUMIRA [Suspect]
     Active Substance: ADALIMUMAB
  3. HUMIRA [Suspect]
     Active Substance: ADALIMUMAB

REACTIONS (19)
  - Mucous stools [Unknown]
  - Abdominal distension [Unknown]
  - Fatigue [Unknown]
  - Weight decreased [Unknown]
  - Off label use [Unknown]
  - Loss of personal independence in daily activities [Unknown]
  - Constipation [Unknown]
  - Hyperhidrosis [Unknown]
  - Insomnia [Unknown]
  - Nightmare [Unknown]
  - Anxiety [Unknown]
  - Depressed mood [Unknown]
  - Flatulence [Unknown]
  - Pyrexia [Unknown]
  - Proctalgia [Unknown]
  - Arthralgia [Unknown]
  - Diarrhoea [Unknown]
  - Device issue [Unknown]
  - Haematochezia [Unknown]

NARRATIVE: CASE EVENT DATE: 20220101
